FAERS Safety Report 24789383 (Version 1)
Quarter: 2024Q4

REPORT INFORMATION
  Report Type: Spontaneous
  Country: US (occurrence: US)
  Receive Date: 20241230
  Receipt Date: 20241230
  Transmission Date: 20250114
  Serious: No
  Sender: AMGEN
  Company Number: US-AMGEN-USASP2024252912

PATIENT
  Age: 74 Year
  Sex: Female

DRUGS (1)
  1. REPATHA [Suspect]
     Active Substance: EVOLOCUMAB
     Indication: Blood cholesterol increased
     Dosage: 140 MILLIGRAM, Q2WK
     Route: 058
     Dates: start: 202408

REACTIONS (5)
  - Injection site pain [Unknown]
  - Eye disorder [Unknown]
  - Device difficult to use [Unknown]
  - Drug dose omission by device [Unknown]
  - Product administration error [Unknown]

NARRATIVE: CASE EVENT DATE: 20241223
